FAERS Safety Report 5366971-4 (Version None)
Quarter: 2007Q2

REPORT INFORMATION
  Report Type: 
  Country: None (occurrence: None)
  Receive Date: 20070619
  Receipt Date: 20070608
  Transmission Date: 20071010
  Serious: Yes (Hospitalization)
  Sender: FDA-Public Use
  Company Number: GXKR2007GB05044

PATIENT
  Age: 64 Year
  Sex: Male

DRUGS (5)
  1. WARFARIN SODIUM [Suspect]
     Dosage: 2 MG, ORAL
     Route: 048
  2. SIMVASTATIN [Suspect]
     Indication: HYPERLIPIDAEMIA
     Dosage: 40 MG, ORAL
     Route: 048
     Dates: start: 20070201, end: 20070504
  3. AMIODARONE [Concomitant]
  4. ATENOLOL [Concomitant]
  5. FUROSEMIDE [Concomitant]

REACTIONS (3)
  - INTERNATIONAL NORMALISED RATIO INCREASED [None]
  - LIVER FUNCTION TEST ABNORMAL [None]
  - RHABDOMYOLYSIS [None]
